FAERS Safety Report 6988541-4 (Version None)
Quarter: 2010Q3

REPORT INFORMATION
  Report Type: 
  Country: None (occurrence: None)
  Receive Date: 20100916
  Receipt Date: 20100907
  Transmission Date: 20110219
  Serious: Yes (Life-Threatening, Other)
  Sender: FDA-Public Use
  Company Number: JP-PFIZER INC-2009244650

PATIENT
  Age: 14 Year
  Sex: Female
  Weight: 36 kg

DRUGS (14)
  1. SILDENAFIL CITRATE [Suspect]
     Indication: PULMONARY ARTERIAL HYPERTENSION
     Dosage: 20 MG, 3X/DAY
     Route: 048
     Dates: start: 20080630
  2. TRACLEER [Concomitant]
     Indication: PULMONARY ARTERIAL HYPERTENSION
     Route: 048
     Dates: start: 20070808, end: 20080713
  3. LASIX [Concomitant]
     Indication: PULMONARY ARTERIAL HYPERTENSION
     Dosage: UNK
     Route: 048
     Dates: start: 20070630
  4. DORNER [Concomitant]
     Dosage: UNK
     Route: 048
     Dates: start: 20070719, end: 20090105
  5. RITUXAN [Concomitant]
     Dosage: UNK
     Route: 042
     Dates: start: 20080702, end: 20090623
  6. ZYLORIC ^GLAXO WELLCOME^ [Concomitant]
     Dosage: UNK
     Route: 048
     Dates: start: 20071017
  7. SINGULAIR [Concomitant]
     Dosage: UNK
     Route: 048
     Dates: start: 20080229
  8. TAKEPRON [Concomitant]
     Dosage: UNK
     Route: 048
     Dates: start: 20071017
  9. PREDONINE [Concomitant]
     Dosage: UNK
     Route: 048
     Dates: start: 20001105
  10. CELLCEPT [Concomitant]
     Dosage: UNK
     Route: 048
     Dates: start: 20080702
  11. ALDACTONE [Concomitant]
     Dosage: UNK
     Route: 048
     Dates: start: 20080717
  12. MEXITIL [Concomitant]
     Dosage: UNK
     Route: 048
     Dates: start: 20080713
  13. HOKUNALIN [Concomitant]
     Dosage: UNK
     Route: 062
     Dates: start: 20080229
  14. SLOW-K [Concomitant]
     Dosage: UNK
     Route: 048
     Dates: start: 20080331

REACTIONS (3)
  - HISTIOCYTOSIS HAEMATOPHAGIC [None]
  - THROMBOCYTOPENIA [None]
  - VENTRICULAR FIBRILLATION [None]
